FAERS Safety Report 25675135 (Version 1)
Quarter: 2025Q3

REPORT INFORMATION
  Report Type: Other
  Country: US (occurrence: US)
  Receive Date: 20250813
  Receipt Date: 20250813
  Transmission Date: 20251021
  Serious: Yes (Death, Hospitalization)
  Sender: ANI
  Company Number: US-ANIPHARMA-024051

PATIENT
  Age: 59 Year
  Sex: Female

DRUGS (5)
  1. VANCOMYCIN [Suspect]
     Active Substance: VANCOMYCIN
     Indication: Necrotising fasciitis
  2. PREDNISONE [Concomitant]
     Active Substance: PREDNISONE
     Indication: Granulomatosis with polyangiitis
  3. CEFEPIME [Concomitant]
     Active Substance: CEFEPIME HYDROCHLORIDE
     Indication: Necrotising fasciitis
  4. LINEZOLID [Concomitant]
     Active Substance: LINEZOLID
     Indication: Necrotising fasciitis
  5. immune-globulin [Concomitant]
     Indication: Necrotising fasciitis

REACTIONS (1)
  - Drug ineffective [Fatal]
